FAERS Safety Report 13122009 (Version 2)
Quarter: 2017Q3

REPORT INFORMATION
  Report Type: Spontaneous
  Country: GB (occurrence: GB)
  Receive Date: 20170117
  Receipt Date: 20170728
  Transmission Date: 20171127
  Serious: Yes (Other)
  Sender: FDA-Public Use
  Company Number: GB-TEVA-729337ACC

PATIENT
  Age: 74 Year
  Sex: Female
  Weight: 70 kg

DRUGS (11)
  1. BISOPROLOL [Concomitant]
     Active Substance: BISOPROLOL
  2. LANSOPRAZOLE. [Concomitant]
     Active Substance: LANSOPRAZOLE
  3. ATORVASTATIN [Concomitant]
     Active Substance: ATORVASTATIN
  4. BUMETANIDE. [Concomitant]
     Active Substance: BUMETANIDE
     Dosage: 5 MILLIGRAM DAILY;
     Dates: start: 20160602
  5. FERROUS SULFATE. [Concomitant]
     Active Substance: FERROUS SULFATE
  6. ELIQUIS [Interacting]
     Active Substance: APIXABAN
     Indication: ATRIAL FIBRILLATION
     Dosage: 10 MILLIGRAM DAILY;
     Route: 048
     Dates: start: 201605, end: 20160603
  7. RAMIPRIL. [Concomitant]
     Active Substance: RAMIPRIL
  8. BUMETANIDE. [Concomitant]
     Active Substance: BUMETANIDE
     Dosage: 4 MILLIGRAM DAILY;
     Dates: end: 20160602
  9. CLOPIDOGREL [Suspect]
     Active Substance: CLOPIDOGREL BISULFATE
  10. EPLERENONE. [Concomitant]
     Active Substance: EPLERENONE
  11. GLYCERYL TRINITRATE [Concomitant]
     Active Substance: NITROGLYCERIN

REACTIONS (6)
  - Acute kidney injury [Unknown]
  - Rectal haemorrhage [Recovered/Resolved]
  - Peripheral swelling [Unknown]
  - Labelled drug-drug interaction medication error [Unknown]
  - Cardiac failure [Unknown]
  - Oedema [Unknown]

NARRATIVE: CASE EVENT DATE: 201606
